FAERS Safety Report 9408213 (Version 2)
Quarter: 2015Q1

REPORT INFORMATION
  Report Type: Spontaneous
  Country: DK (occurrence: DK)
  Receive Date: 20130716
  Receipt Date: 20150324
  Transmission Date: 20150721
  Serious: Yes (Other)
  Sender: FDA-Public Use
  Company Number: FK201302496

PATIENT
  Age: 46 Year
  Sex: Female

DRUGS (3)
  1. FLUORURACIL (FLUORURACIL)(FLUORURACIL) [Concomitant]
  2. CALCIUMFOLINAT (CALCIUMFOLINAT)(CALCIUMFOLINAT) [Concomitant]
  3. IRINOTECAN [Suspect]
     Active Substance: IRINOTECAN
     Indication: GASTROINTESTINAL CARCINOMA
     Dates: start: 20100419, end: 201005

REACTIONS (7)
  - Skin discolouration [None]
  - Ischaemic neuropathy [None]
  - Neuritis [None]
  - Peripheral arterial occlusive disease [None]
  - Walking disability [None]
  - Swollen tongue [None]
  - Peripheral artery thrombosis [None]

NARRATIVE: CASE EVENT DATE: 2010
